FAERS Safety Report 25469245 (Version 1)
Quarter: 2025Q2

REPORT INFORMATION
  Report Type: Spontaneous
  Country: HU (occurrence: HU)
  Receive Date: 20250623
  Receipt Date: 20250623
  Transmission Date: 20250716
  Serious: Yes (Other)
  Sender: MYLAN
  Company Number: HU-002147023-NVSC2025HU091602

PATIENT
  Age: 69 Year
  Sex: Female

DRUGS (36)
  1. ZOLEDRONIC ACID [Suspect]
     Active Substance: ZOLEDRONIC ACID
     Indication: Bone pain
  2. ZOLEDRONIC ACID [Suspect]
     Active Substance: ZOLEDRONIC ACID
     Route: 065
  3. ZOLEDRONIC ACID [Suspect]
     Active Substance: ZOLEDRONIC ACID
     Route: 065
  4. ZOLEDRONIC ACID [Suspect]
     Active Substance: ZOLEDRONIC ACID
  5. RIBOCICLIB [Suspect]
     Active Substance: RIBOCICLIB
     Indication: Hormone receptor positive HER2 negative breast cancer
     Dosage: 600 MG, QD (DAILY; 21-7 DAY CYCLE)
     Dates: start: 2023, end: 2024
  6. RIBOCICLIB [Suspect]
     Active Substance: RIBOCICLIB
     Dosage: 600 MG, QD (DAILY; 21-7 DAY CYCLE)
     Dates: start: 2023, end: 2024
  7. RIBOCICLIB [Suspect]
     Active Substance: RIBOCICLIB
     Dosage: 600 MG, QD (DAILY; 21-7 DAY CYCLE)
     Route: 065
     Dates: start: 2023, end: 2024
  8. RIBOCICLIB [Suspect]
     Active Substance: RIBOCICLIB
     Dosage: 600 MG, QD (DAILY; 21-7 DAY CYCLE)
     Route: 065
     Dates: start: 2023, end: 2024
  9. RIBOCICLIB [Suspect]
     Active Substance: RIBOCICLIB
     Dosage: 400 MG, QD DAILY; 21-7 DAY CYCLE
     Dates: start: 2024, end: 2024
  10. RIBOCICLIB [Suspect]
     Active Substance: RIBOCICLIB
     Dosage: 400 MG, QD DAILY; 21-7 DAY CYCLE
     Dates: start: 2024, end: 2024
  11. RIBOCICLIB [Suspect]
     Active Substance: RIBOCICLIB
     Dosage: 400 MG, QD DAILY; 21-7 DAY CYCLE
     Route: 065
     Dates: start: 2024, end: 2024
  12. RIBOCICLIB [Suspect]
     Active Substance: RIBOCICLIB
     Dosage: 400 MG, QD DAILY; 21-7 DAY CYCLE
     Route: 065
     Dates: start: 2024, end: 2024
  13. PERINDOPRIL [Concomitant]
     Active Substance: PERINDOPRIL
     Indication: Hypertension
  14. PERINDOPRIL [Concomitant]
     Active Substance: PERINDOPRIL
     Route: 065
  15. PERINDOPRIL [Concomitant]
     Active Substance: PERINDOPRIL
     Route: 065
  16. PERINDOPRIL [Concomitant]
     Active Substance: PERINDOPRIL
  17. BISOPROLOL [Concomitant]
     Active Substance: BISOPROLOL
     Indication: Hypertension
  18. BISOPROLOL [Concomitant]
     Active Substance: BISOPROLOL
     Route: 065
  19. BISOPROLOL [Concomitant]
     Active Substance: BISOPROLOL
     Route: 065
  20. BISOPROLOL [Concomitant]
     Active Substance: BISOPROLOL
  21. INDAPAMIDE [Concomitant]
     Active Substance: INDAPAMIDE
     Indication: Hypertension
  22. INDAPAMIDE [Concomitant]
     Active Substance: INDAPAMIDE
     Route: 065
  23. INDAPAMIDE [Concomitant]
     Active Substance: INDAPAMIDE
     Route: 065
  24. INDAPAMIDE [Concomitant]
     Active Substance: INDAPAMIDE
  25. FULVESTRANT [Concomitant]
     Active Substance: FULVESTRANT
     Indication: Hormone receptor positive HER2 negative breast cancer
  26. FULVESTRANT [Concomitant]
     Active Substance: FULVESTRANT
     Route: 065
  27. FULVESTRANT [Concomitant]
     Active Substance: FULVESTRANT
     Route: 065
  28. FULVESTRANT [Concomitant]
     Active Substance: FULVESTRANT
  29. METAMIZOLE [Concomitant]
     Active Substance: METAMIZOLE
     Indication: Pain
  30. METAMIZOLE [Concomitant]
     Active Substance: METAMIZOLE
     Route: 065
  31. METAMIZOLE [Concomitant]
     Active Substance: METAMIZOLE
     Route: 065
  32. METAMIZOLE [Concomitant]
     Active Substance: METAMIZOLE
  33. TRAMADOL [Concomitant]
     Active Substance: TRAMADOL
     Indication: Pain
  34. TRAMADOL [Concomitant]
     Active Substance: TRAMADOL
     Route: 065
  35. TRAMADOL [Concomitant]
     Active Substance: TRAMADOL
     Route: 065
  36. TRAMADOL [Concomitant]
     Active Substance: TRAMADOL

REACTIONS (4)
  - Nephrosclerosis [Unknown]
  - Neutropenia [Unknown]
  - Renal impairment [Unknown]
  - Sensory loss [Unknown]

NARRATIVE: CASE EVENT DATE: 20240101
